FAERS Safety Report 24950240 (Version 1)
Quarter: 2025Q1

REPORT INFORMATION
  Report Type: Spontaneous
  Country: IR (occurrence: IR)
  Receive Date: 20250210
  Receipt Date: 20250210
  Transmission Date: 20250409
  Serious: Yes (Death, Hospitalization, Other)
  Sender: EPIC PHARM
  Company Number: IR-EPICPHARMA-IR-2025EPCLIT00131

PATIENT
  Age: 5 Year
  Sex: Male
  Weight: 38 kg

DRUGS (5)
  1. CLOBETASOL PROPIONATE [Suspect]
     Active Substance: CLOBETASOL PROPIONATE
     Indication: Psoriasis
     Route: 061
  2. METHOTREXATE [Concomitant]
     Active Substance: METHOTREXATE
     Route: 048
  3. UREA [Concomitant]
     Active Substance: UREA
     Route: 061
  4. ENALAPRIL [Concomitant]
     Active Substance: ENALAPRIL
     Route: 065
  5. ENALAPRIL [Concomitant]
     Active Substance: ENALAPRIL
     Indication: Hypertension
     Route: 065

REACTIONS (6)
  - Cushing^s syndrome [Fatal]
  - Pyrexia [Fatal]
  - Vomiting [Fatal]
  - Product use issue [Unknown]
  - Intentional product misuse to child [Unknown]
  - Product use in unapproved indication [Unknown]
